FAERS Safety Report 16643903 (Version 6)
Quarter: 2020Q1

REPORT INFORMATION
  Report Type: Report from Study
  Country: US (occurrence: US)
  Receive Date: 20190729
  Receipt Date: 20200320
  Transmission Date: 20200409
  Serious: Yes (Life-Threatening, Hospitalization, Other)
  Sender: FDA-Public Use
  Company Number: US-GILEAD-2019-0420136

PATIENT
  Age: 58 Year
  Sex: Male
  Weight: 105.3 kg

DRUGS (27)
  1. ZOCOR [Concomitant]
     Active Substance: SIMVASTATIN
     Dosage: 20,MG,DAILY
     Route: 048
     Dates: start: 20110515
  2. COZAAR [Concomitant]
     Active Substance: LOSARTAN POTASSIUM
     Dosage: 50,MG,DAILY
     Route: 048
     Dates: start: 20140917
  3. LOSARTAN. [Concomitant]
     Active Substance: LOSARTAN
     Dosage: 50,MG,DAILY
     Route: 048
     Dates: start: 20140917
  4. CYCLOPHOSPHAMIDE. [Suspect]
     Active Substance: CYCLOPHOSPHAMIDE
     Dosage: 500
     Route: 042
     Dates: start: 20181220, end: 20181220
  5. NORVASC [Concomitant]
     Active Substance: AMLODIPINE BESYLATE
     Dosage: 10,MG,DAILY
     Route: 048
     Dates: start: 20131209
  6. PAXIL [Concomitant]
     Active Substance: PAROXETINE HYDROCHLORIDE
     Dosage: 40,MG,DAILY
     Route: 048
     Dates: start: 20141124
  7. COLACE [Concomitant]
     Active Substance: DOCUSATE SODIUM
     Dosage: 100,MG,AS NECESSARY
     Route: 048
     Dates: start: 20180309
  8. FLUDARABINE [Suspect]
     Active Substance: FLUDARABINE PHOSPHATE
     Dosage: 30
     Route: 042
     Dates: start: 20180609, end: 20180609
  9. CYCLOPHOSPHAMIDE. [Suspect]
     Active Substance: CYCLOPHOSPHAMIDE
     Dosage: 500
     Route: 042
     Dates: start: 20180609, end: 20180609
  10. CYCLOPHOSPHAMIDE. [Suspect]
     Active Substance: CYCLOPHOSPHAMIDE
     Dosage: 500
     Route: 042
     Dates: start: 20180610, end: 20180610
  11. CYCLOPHOSPHAMIDE. [Suspect]
     Active Substance: CYCLOPHOSPHAMIDE
     Dosage: 500
     Route: 042
     Dates: start: 20181219, end: 20181219
  12. WELLBUTRIN [Concomitant]
     Active Substance: BUPROPION HYDROCHLORIDE
     Dosage: 300,MG,DAILY
     Route: 048
     Dates: start: 20110515
  13. SENNA [SENNOSIDE A+B] [Concomitant]
     Dosage: 8.6,MG,OTHER
     Route: 048
     Dates: start: 20180309
  14. CYCLOPHOSPHAMIDE. [Suspect]
     Active Substance: CYCLOPHOSPHAMIDE
     Indication: BONE MARROW CONDITIONING REGIMEN
     Dosage: 500
     Route: 042
     Dates: start: 20180608, end: 20180608
  15. ZARXIO [Concomitant]
     Active Substance: FILGRASTIM-SNDZ
     Dosage: 300,UG,DAILY
     Route: 058
     Dates: start: 20190728, end: 20190728
  16. FLUDARABINE [Suspect]
     Active Substance: FLUDARABINE PHOSPHATE
     Dosage: 30
     Route: 042
     Dates: start: 20180610, end: 20180610
  17. FLUDARABINE [Suspect]
     Active Substance: FLUDARABINE PHOSPHATE
     Dosage: 30
     Route: 042
     Dates: start: 20181219, end: 20181219
  18. FLUDARABINE [Suspect]
     Active Substance: FLUDARABINE PHOSPHATE
     Dosage: 30
     Route: 042
     Dates: start: 20181220, end: 20181220
  19. FLUDARABINE [Suspect]
     Active Substance: FLUDARABINE PHOSPHATE
     Dosage: 30
     Route: 042
     Dates: start: 20181221, end: 20181221
  20. PROTONIX [OMEPRAZOLE] [Concomitant]
     Active Substance: OMEPRAZOLE
     Dosage: 40,MG,DAILY
     Route: 048
     Dates: start: 20110515
  21. ENOXAPARIN [Concomitant]
     Active Substance: ENOXAPARIN
     Dosage: 1 MG/KG, BID
     Dates: start: 20180613, end: 20180908
  22. CYCLOPHOSPHAMIDE. [Suspect]
     Active Substance: CYCLOPHOSPHAMIDE
     Dosage: 500
     Route: 042
     Dates: start: 20181221, end: 20181221
  23. GLIPIZIDE. [Concomitant]
     Active Substance: GLIPIZIDE
     Dosage: 10,MG,TWICE DAILY
     Route: 048
     Dates: start: 20180321
  24. AXICABTAGENE CILOLEUCEL [Suspect]
     Active Substance: AXICABTAGENE CILOLEUCEL
     Indication: B-CELL LYMPHOMA
     Dosage: UNK
     Route: 042
     Dates: start: 20181224, end: 20181224
  25. FLUDARABINE [Suspect]
     Active Substance: FLUDARABINE PHOSPHATE
     Indication: BONE MARROW CONDITIONING REGIMEN
     Dosage: 30
     Route: 042
     Dates: start: 20180608, end: 20180608
  26. METFORMIN [Concomitant]
     Active Substance: METFORMIN HYDROCHLORIDE
     Dosage: 1000,MG,TWICE DAILY
     Route: 048
     Dates: start: 20131209
  27. PROCHLORPERAZINE. [Concomitant]
     Active Substance: PROCHLORPERAZINE
     Dosage: 10,MG,OTHER
     Route: 048
     Dates: start: 20180608

REACTIONS (5)
  - Deep vein thrombosis [Recovered/Resolved]
  - Cerebrovascular accident [Recovered/Resolved]
  - Pyrexia [Recovered/Resolved]
  - Sepsis [Recovered/Resolved]
  - Neutropenia [Recovered/Resolved]

NARRATIVE: CASE EVENT DATE: 20180613
